FAERS Safety Report 6532405-7 (Version None)
Quarter: 2010Q1

REPORT INFORMATION
  Report Type: 
  Country: None (occurrence: None)
  Receive Date: 20100108
  Receipt Date: 20100104
  Transmission Date: 20100710
  Serious: Yes (Life-Threatening, Hospitalization, Other)
  Sender: FDA-Public Use
  Company Number: PL-ELI_LILLY_AND_COMPANY-PL201001000299

PATIENT
  Age: 67 Year
  Sex: Male
  Weight: 53 kg

DRUGS (4)
  1. GEMCITABINE HCL [Suspect]
     Indication: NON-SMALL CELL LUNG CANCER
     Dosage: 1940 MG, DAYS 1+8 EVERY 3 WEEKS
     Route: 042
     Dates: start: 20090928, end: 20091207
  2. CISPLATIN [Suspect]
     Indication: NON-SMALL CELL LUNG CANCER
     Dosage: 124 MG, DAY 1 EVERY 3 WEEKS
     Route: 042
     Dates: start: 20090928, end: 20091130
  3. AG-013736(AXITINIB) [Suspect]
     Indication: NON-SMALL CELL LUNG CANCER
     Dosage: 7 MG, 2/D
     Route: 048
     Dates: start: 20090928, end: 20091217
  4. PENTOXIFYLLINE [Concomitant]

REACTIONS (4)
  - DEHYDRATION [None]
  - DYSPNOEA [None]
  - FATIGUE [None]
  - LEUKOCYTOSIS [None]
